FAERS Safety Report 8976022 (Version 1)
Quarter: 2012Q4

REPORT INFORMATION
  Report Type: 
  Country: US (occurrence: US)
  Receive Date: 20121219
  Receipt Date: 20121219
  Transmission Date: 20130627
  Serious: Yes (Hospitalization)
  Sender: FDA-Public Use
  Company Number: US-BAYER-2012-132410

PATIENT
  Age: 28 Year
  Sex: Female

DRUGS (5)
  1. YASMIN [Suspect]
     Dosage: UNK
  2. SYNTHROID [Concomitant]
  3. GLUCOVANCE [Concomitant]
  4. TRICOR [Concomitant]
  5. PERCOCET [Concomitant]

REACTIONS (1)
  - Deep vein thrombosis [None]
